FAERS Safety Report 18194332 (Version 1)
Quarter: 2020Q3

REPORT INFORMATION
  Report Type: Spontaneous
  Country: FR (occurrence: FR)
  Receive Date: 20200825
  Receipt Date: 20200825
  Transmission Date: 20201103
  Serious: Yes (Hospitalization, Other)
  Sender: FDA-Public Use
  Company Number: FR-PFIZER INC-2020325227

PATIENT
  Age: 16 Year
  Sex: Male

DRUGS (1)
  1. LYRICA [Suspect]
     Active Substance: PREGABALIN
     Dosage: 1800 MG, SINGLE
     Route: 048
     Dates: start: 20200229, end: 20200229

REACTIONS (5)
  - Poisoning deliberate [Recovered/Resolved]
  - Depressed level of consciousness [Recovered/Resolved]
  - Drug abuse [Not Recovered/Not Resolved]
  - Substance use [Not Recovered/Not Resolved]
  - Vertigo [Recovered/Resolved]

NARRATIVE: CASE EVENT DATE: 20200229
